FAERS Safety Report 24328774 (Version 1)
Quarter: 2024Q3

REPORT INFORMATION
  Report Type: Spontaneous
  Country: IT (occurrence: IT)
  Receive Date: 20240917
  Receipt Date: 20240917
  Transmission Date: 20241017
  Serious: Yes (Life-Threatening, Hospitalization, Congenital Anomaly, Other)
  Sender: SANDOZ
  Company Number: IT-002147023-NVSC2020IT122914

PATIENT
  Sex: Female
  Weight: 2.21 kg

DRUGS (8)
  1. DIAZEPAM [Suspect]
     Active Substance: DIAZEPAM
     Indication: Foetal exposure during pregnancy
     Dosage: MATERNAL DOSE: 1-2 MG/DAY
     Route: 064
  2. DIAZEPAM [Suspect]
     Active Substance: DIAZEPAM
     Indication: Panic attack
  3. LORAZEPAM [Suspect]
     Active Substance: LORAZEPAM
     Indication: Foetal exposure during pregnancy
     Dosage: MATERNAL DOSE: 10 DROPS/DAY (1/12 MILLILITRE)
     Route: 064
  4. LORAZEPAM [Suspect]
     Active Substance: LORAZEPAM
     Indication: Panic attack
  5. ACETAMINOPHEN [Interacting]
     Active Substance: ACETAMINOPHEN
     Indication: Foetal exposure during pregnancy
     Dosage: 2 G, QD (2-4 G/DAY)
     Route: 064
  6. ACETAMINOPHEN [Interacting]
     Active Substance: ACETAMINOPHEN
     Indication: Headache
     Dosage: MATERNAL DOSE:1-2 G OCCASIONALLY IN THE SECOND AND THIRD TRIMESTER
     Route: 064
  7. SERTRALINE [Interacting]
     Active Substance: SERTRALINE HYDROCHLORIDE
     Indication: Foetal exposure during pregnancy
     Dosage: 25 MG, QD
     Route: 064
  8. SERTRALINE [Interacting]
     Active Substance: SERTRALINE HYDROCHLORIDE
     Indication: Panic attack

REACTIONS (15)
  - Pulmonary hypertension [Recovered/Resolved]
  - Hypoxia [Recovered/Resolved]
  - Ductus arteriosus premature closure [Recovered/Resolved]
  - Cardiomegaly [Recovered/Resolved]
  - Tricuspid valve incompetence [Recovered/Resolved]
  - Pulmonary valve incompetence [Unknown]
  - Right ventricular hypertrophy [Recovered/Resolved]
  - Right ventricular dilatation [Recovered/Resolved]
  - Cardiac dysfunction [Recovered/Resolved]
  - Drug interaction [Recovered/Resolved]
  - Foetal exposure during pregnancy [Recovered/Resolved]
  - Newborn persistent pulmonary hypertension [Recovered/Resolved]
  - Premature baby [Unknown]
  - Neonatal hypoxia [Unknown]
  - Low birth weight baby [Unknown]
